FAERS Safety Report 5699160-4 (Version None)
Quarter: 2008Q2

REPORT INFORMATION
  Report Type: 
  Country: None (occurrence: None)
  Receive Date: 20080407
  Receipt Date: 20080407
  Transmission Date: 20081010
  Serious: Yes (Other)
  Sender: FDA-Public Use
  Company Number: None

PATIENT
  Age: 56 Year
  Sex: Female
  Weight: 72.5755 kg

DRUGS (1)
  1. CHANTIX [Suspect]
     Indication: TOBACCO ABUSE
     Dosage: 1MG TWICE DAILY PO
     Route: 048
     Dates: start: 20071219, end: 20080404

REACTIONS (3)
  - DEPRESSION [None]
  - MOOD ALTERED [None]
  - SUICIDAL IDEATION [None]
